FAERS Safety Report 7898096-8 (Version None)
Quarter: 2011Q4

REPORT INFORMATION
  Report Type: 
  Country: None (occurrence: None)
  Receive Date: 20111107
  Receipt Date: 20111103
  Transmission Date: 20120403
  Serious: Yes (Other)
  Sender: FDA-Public Use
  Company Number: US-AMGEN-USASP2011030633

PATIENT
  Sex: Female

DRUGS (2)
  1. NPLATE [Suspect]
     Indication: CHRONIC MYELOID LEUKAEMIA
     Dates: start: 20101223, end: 20101230
  2. NPLATE [Suspect]
     Indication: THROMBOCYTOPENIA

REACTIONS (2)
  - CHRONIC MYELOID LEUKAEMIA [None]
  - DRUG INEFFECTIVE [None]
